FAERS Safety Report 5485260-0 (Version None)
Quarter: 2007Q4

REPORT INFORMATION
  Report Type: 
  Country: None (occurrence: None)
  Receive Date: 20071010
  Receipt Date: 20071010
  Transmission Date: 20080405
  Serious: Yes (Life-Threatening, Disabling, Other)
  Sender: FDA-Public Use
  Company Number: None

PATIENT
  Age: 37 Year
  Sex: Male
  Weight: 90.7194 kg

DRUGS (3)
  1. ABILIFY [Suspect]
     Indication: DRUG WITHDRAWAL MAINTENANCE THERAPY
     Dosage: I THINK IT WAS 30 MG  DAILY  PO
     Route: 048
     Dates: start: 20061201, end: 20070301
  2. DEPAKOTE [Concomitant]
  3. SEROQUEL [Concomitant]

REACTIONS (2)
  - UNEVALUABLE EVENT [None]
  - WEIGHT INCREASED [None]
